FAERS Safety Report 10880911 (Version 1)
Quarter: 2015Q1

REPORT INFORMATION
  Report Type: Spontaneous
  Country: FR (occurrence: FR)
  Receive Date: 20150303
  Receipt Date: 20150303
  Transmission Date: 20150721
  Serious: Yes (Other)
  Sender: FDA-Public Use
  Company Number: FR-TEVA-542667ISR

PATIENT
  Age: 47 Year
  Sex: Female

DRUGS (5)
  1. KETOPROFENE ZENTIVA LP 100 MG [Suspect]
     Active Substance: KETOPROFEN
     Indication: MIGRAINE
     Dosage: AT THE TIME MIGRAINE ATTACKS
     Route: 048
  2. SERTRALINE [Suspect]
     Active Substance: SERTRALINE HYDROCHLORIDE
     Indication: DEPRESSION
     Dosage: 50 MILLIGRAM DAILY; IN THE LONG TERM
     Route: 048
     Dates: end: 201409
  3. NOCTAMIDE 1 MG [Suspect]
     Active Substance: LORMETAZEPAM
     Dosage: 1 MILLIGRAM DAILY; IN THE LONG TERM
     Route: 048
  4. ZOLMITRIPTAN TEVA [Suspect]
     Active Substance: ZOLMITRIPTAN
     Indication: MIGRAINE
     Dosage: AT THE TIME MIGRAINE ATTACK
     Route: 048
  5. ALPRAZOLAM TEVA [Suspect]
     Active Substance: ALPRAZOLAM
     Indication: DEPRESSION
     Dosage: IN THE LONG TERM
     Route: 048

REACTIONS (4)
  - Osteolysis [Unknown]
  - Loose tooth [Unknown]
  - Vitamin D deficiency [Unknown]
  - Alveolar bone resorption [Not Recovered/Not Resolved]

NARRATIVE: CASE EVENT DATE: 201408
